FAERS Safety Report 11316626 (Version 1)
Quarter: 2015Q3

REPORT INFORMATION
  Report Type: Spontaneous
  Country: CA (occurrence: CA)
  Receive Date: 20150728
  Receipt Date: 20150728
  Transmission Date: 20151125
  Serious: Yes (Disabling)
  Sender: FDA-Public Use
  Company Number: CA-TEVA-581703ACC

PATIENT
  Age: 83 Year
  Sex: Female
  Weight: 72.64 kg

DRUGS (7)
  1. TEVA-SIMVASTATIN [Suspect]
     Active Substance: SIMVASTATIN
     Indication: HYPERCHOLESTEROLAEMIA
     Dosage: 20 MILLIGRAM DAILY;
     Route: 048
  2. LUTEIN 20 MG [Concomitant]
     Route: 065
  3. CO ENZYME Q10 [Concomitant]
     Route: 065
  4. FOLIC ACID. [Concomitant]
     Active Substance: FOLIC ACID
     Route: 065
  5. ASPIRIN. [Concomitant]
     Active Substance: ASPIRIN
     Route: 065
  6. DIOVAN [Concomitant]
     Active Substance: VALSARTAN
     Route: 065
  7. EZETROL [Concomitant]
     Active Substance: EZETIMIBE
     Route: 065

REACTIONS (3)
  - Asthenia [Unknown]
  - Abasia [Unknown]
  - Myalgia [Unknown]
